FAERS Safety Report 20255753 (Version 1)
Quarter: 2021Q4

REPORT INFORMATION
  Report Type: Spontaneous
  Country: US (occurrence: None)
  Receive Date: 20211229
  Receipt Date: 20211229
  Transmission Date: 20220303
  Serious: Yes (Death, Hospitalization)
  Sender: FDA-Public Use
  Company Number: None

PATIENT
  Age: 92 Year
  Sex: Male
  Weight: 64 kg

DRUGS (9)
  1. REGEN-COV [Suspect]
     Active Substance: CASIRIVIMAB\IMDEVIMAB
     Indication: COVID-19
     Dosage: OTHER FREQUENCY : ONCE;?
     Route: 058
     Dates: start: 20211103, end: 20211103
  2. AMIODARONE [Concomitant]
     Active Substance: AMIODARONE
     Dates: start: 20211110
  3. AMLODIPINE [Concomitant]
     Active Substance: AMLODIPINE BESYLATE
     Dates: start: 20211109
  4. ATORVASTATIN [Concomitant]
     Active Substance: ATORVASTATIN
     Dates: start: 20211108
  5. BARICITINIB [Concomitant]
     Active Substance: BARICITINIB
     Dates: start: 20211109
  6. CYPROHEPTADINE [Concomitant]
     Active Substance: CYPROHEPTADINE
     Dates: start: 20211116
  7. DEXAMETHASONE [Concomitant]
     Active Substance: DEXAMETHASONE
     Dates: start: 20211108
  8. RIVAROXABAN [Concomitant]
     Active Substance: RIVAROXABAN
     Dates: start: 20211116
  9. TAMSULOSIN [Concomitant]
     Active Substance: TAMSULOSIN
     Dates: start: 20211111

REACTIONS (1)
  - Respiratory distress [None]

NARRATIVE: CASE EVENT DATE: 20211101
